FAERS Safety Report 5701248-6 (Version None)
Quarter: 2008Q2

REPORT INFORMATION
  Report Type: 
  Country: None (occurrence: None)
  Receive Date: 20080410
  Receipt Date: 20080313
  Transmission Date: 20081010
  Serious: No
  Sender: FDA-Public Use
  Company Number: US-BOEHRINGER INGELHEIM GMBH, GERMANY-2008-BP-04296BP

PATIENT
  Sex: Female

DRUGS (1)
  1. MICARDIS HCT [Suspect]

REACTIONS (3)
  - HYPERSENSITIVITY [None]
  - NAUSEA [None]
  - RASH [None]
